FAERS Safety Report 5969161-7 (Version None)
Quarter: 2008Q4

REPORT INFORMATION
  Report Type: 
  Country: None (occurrence: None)
  Receive Date: 20081126
  Receipt Date: 20081119
  Transmission Date: 20090506
  Serious: Yes (Hospitalization, Other)
  Sender: FDA-Public Use
  Company Number: CH-WATSON-2008-06866

PATIENT
  Age: 50 Year
  Sex: Female

DRUGS (2)
  1. DEXAMETHASONE TAB [Suspect]
     Indication: EVANS SYNDROME
     Dosage: 40 MG PER DAY
  2. TRANEXAMIC ACID [Suspect]
     Indication: EVANS SYNDROME
     Dosage: 0.5 G THREE TIMES PER DAY

REACTIONS (1)
  - VENOUS THROMBOSIS [None]
